FAERS Safety Report 14966236 (Version 2)
Quarter: 2018Q2

REPORT INFORMATION
  Report Type: Report from Study
  Country: None (occurrence: US)
  Receive Date: 20180603
  Receipt Date: 20180627
  Transmission Date: 20180711
  Serious: Yes (Hospitalization)
  Sender: FDA-Public Use
  Company Number: US-ABBVIE-18K-163-2374014-00

PATIENT
  Age: 63 Year
  Sex: Male
  Weight: 80.81 kg

DRUGS (4)
  1. HUMIRA [Suspect]
     Active Substance: ADALIMUMAB
     Indication: CROHN^S DISEASE
     Route: 058
     Dates: start: 2015
  2. HYDROCORTISONE. [Concomitant]
     Active Substance: HYDROCORTISONE
     Indication: CARDIAC DYSFUNCTION
  3. BABY ASPIRIN [Concomitant]
     Active Substance: ASPIRIN
     Indication: CARDIAC DISORDER
  4. HUMIRA [Suspect]
     Active Substance: ADALIMUMAB
     Route: 058

REACTIONS (11)
  - Hypotension [Recovered/Resolved]
  - Renal impairment [Recovering/Resolving]
  - Cardiac failure [Not Recovered/Not Resolved]
  - Blood potassium increased [Recovered/Resolved]
  - Muscle spasms [Recovered/Resolved]
  - Fluid retention [Recovering/Resolving]
  - Vitamin D decreased [Recovering/Resolving]
  - Influenza [Recovered/Resolved]
  - Limb discomfort [Unknown]
  - Heart rate abnormal [Recovering/Resolving]
  - Dehydration [Recovered/Resolved]

NARRATIVE: CASE EVENT DATE: 201712
